FAERS Safety Report 6400779-3 (Version None)
Quarter: 2009Q4

REPORT INFORMATION
  Report Type: 
  Country: None (occurrence: None)
  Receive Date: 20091014
  Receipt Date: 20091007
  Transmission Date: 20100525
  Serious: Yes (Death)
  Sender: FDA-Public Use
  Company Number: US-GENENTECH-292007

PATIENT
  Age: 56 Year
  Sex: Female

DRUGS (2)
  1. BEVACIZUMAB [Suspect]
     Indication: BREAST CANCER
     Dosage: 10 MG/KG OVER 30-90 MIN, DAYS 1+15
     Route: 042
     Dates: start: 20090812
  2. IXABEPILONE [Suspect]
     Indication: BREAST CANCER
     Dosage: 16 MG/M2 OVER 1 HOUR, DAYS1,8,15
     Route: 042
     Dates: start: 20090812

REACTIONS (1)
  - DEATH [None]
